FAERS Safety Report 5809801-6 (Version None)
Quarter: 2008Q3

REPORT INFORMATION
  Report Type: 
  Country: None (occurrence: None)
  Receive Date: 20080714
  Receipt Date: 20080714
  Transmission Date: 20090109
  Serious: Yes (Death)
  Sender: FDA-Public Use
  Company Number: None

PATIENT
  Sex: Male
  Weight: 17.4 kg

DRUGS (1)
  1. BOTOX [Suspect]
     Indication: MUSCLE SPASTICITY
     Dosage: 300 UNITS GIVEN 7/14/2006 IM SEE NARRATIVE FOR OTHERS KNOWN 8 TIMES TOTAL
     Route: 030
     Dates: start: 20020621, end: 20020810

REACTIONS (4)
  - DRUG EFFECT DECREASED [None]
  - LUNG INFECTION PSEUDOMONAL [None]
  - PNEUMONIA STAPHYLOCOCCAL [None]
  - SLEEP APNOEA SYNDROME [None]
